FAERS Safety Report 9484628 (Version 2)
Quarter: 2013Q3

REPORT INFORMATION
  Report Type: Spontaneous
  Country: US (occurrence: US)
  Receive Date: 20130828
  Receipt Date: 20130905
  Transmission Date: 20140515
  Serious: No
  Sender: FDA-Public Use
  Company Number: US-JNJFOC-20130812077

PATIENT
  Sex: Female
  Weight: 43.09 kg

DRUGS (2)
  1. DURAGESIC [Suspect]
     Indication: PAIN
     Route: 062
     Dates: start: 2000
  2. DURAGESIC [Suspect]
     Indication: PAIN
     Dosage: 1 - 100MCG, 1 -75MCG, 1- 50MCG AND 1 - 25MCG PATCH EVERY 48 HOURS
     Route: 062
     Dates: start: 201308

REACTIONS (4)
  - Hormone level abnormal [Unknown]
  - Drug ineffective [Recovered/Resolved]
  - Product quality issue [Unknown]
  - Wrong technique in drug usage process [Recovered/Resolved]
